FAERS Safety Report 12963212 (Version 2)
Quarter: 2016Q4

REPORT INFORMATION
  Report Type: Spontaneous
  Country: DE (occurrence: DE)
  Receive Date: 20161122
  Receipt Date: 20161123
  Transmission Date: 20170207
  Serious: Yes (Other)
  Sender: FDA-Public Use
  Company Number: DE-BIOGEN-2016BI00295007

PATIENT
  Age: 27 Year
  Sex: Female

DRUGS (2)
  1. IBUPROFEN. [Concomitant]
     Active Substance: IBUPROFEN
     Indication: PAIN
     Route: 065
  2. PLEGRIDY [Suspect]
     Active Substance: PEGINTERFERON BETA-1A
     Indication: RELAPSING-REMITTING MULTIPLE SCLEROSIS
     Route: 058
     Dates: start: 201409, end: 20161025

REACTIONS (10)
  - Headache [Unknown]
  - Gastroenteritis enteroviral [Unknown]
  - Back pain [Unknown]
  - Erythema [Unknown]
  - Lymphocytosis [Unknown]
  - Leukopenia [Unknown]
  - Pruritus [Unknown]
  - Meningism [Unknown]
  - Nuclear magnetic resonance imaging abnormal [Unknown]
  - Agranulocytosis [Unknown]

NARRATIVE: CASE EVENT DATE: 2015
